FAERS Safety Report 4603756-8 (Version None)
Quarter: 2005Q1

REPORT INFORMATION
  Report Type: 
  Country: None (occurrence: None)
  Receive Date: 20050308
  Receipt Date: 20050308
  Transmission Date: 20050727
  Serious: Yes (Other)
  Sender: FDA-Public Use
  Company Number: None

PATIENT
  Sex: Female
  Weight: 51.7101 kg

DRUGS (5)
  1. ADDERALL XR 10 [Suspect]
     Indication: LEARNING DISABILITY
     Dosage: 10 MG DAILY FOR 1 WEEK, THEN 20 MG ONCE DAILY
     Dates: start: 20050107, end: 20050113
  2. ADDERALL XR 10 [Suspect]
     Indication: LEARNING DISABILITY
     Dosage: 10 MG DAILY FOR 1 WEEK, THEN 20 MG ONCE DAILY
     Dates: start: 20050114
  3. REMERON [Concomitant]
  4. ZOLOFT [Concomitant]
  5. TOPAMAX [Concomitant]

REACTIONS (5)
  - CHEST PAIN [None]
  - HEADACHE [None]
  - HEART RATE INCREASED [None]
  - PALPITATIONS [None]
  - WEIGHT DECREASED [None]
